FAERS Safety Report 5194692-X (Version None)
Quarter: 2006Q4

REPORT INFORMATION
  Report Type: 
  Country: None (occurrence: None)
  Receive Date: 20061229
  Receipt Date: 20061120
  Transmission Date: 20070319
  Serious: Yes (Other)
  Sender: FDA-Public Use
  Company Number: PHNR2006AU01588

PATIENT
  Sex: Male

DRUGS (8)
  1. GLEEVEC [Suspect]
     Indication: CHRONIC MYELOID LEUKAEMIA
     Route: 048
     Dates: start: 20000301, end: 20021107
  2. GLEEVEC [Suspect]
     Dosage: 600MG
     Dates: start: 20021107, end: 20030205
  3. GLEEVEC [Suspect]
     Dosage: 800MG
     Route: 048
     Dates: start: 20030205, end: 20060424
  4. GLEEVEC [Suspect]
     Dosage: 400MG
     Route: 048
     Dates: start: 20060705, end: 20061116
  5. ESOMEPRAZOLE MAGNESIUM [Concomitant]
  6. ATENOLOL [Concomitant]
  7. AMILORIDE HYDROCHLORIDE [Concomitant]
  8. FRUSEMIDE [Concomitant]

REACTIONS (11)
  - CARDIAC FAILURE CONGESTIVE [None]
  - CARDIOMYOPATHY [None]
  - DYSPNOEA [None]
  - EJECTION FRACTION DECREASED [None]
  - FATIGUE [None]
  - FLUID OVERLOAD [None]
  - LEFT VENTRICULAR FAILURE [None]
  - MALAISE [None]
  - OEDEMA PERIPHERAL [None]
  - RIGHT VENTRICULAR FAILURE [None]
  - VENTRICULAR HYPERTROPHY [None]
